FAERS Safety Report 11017004 (Version 2)
Quarter: 2015Q2

REPORT INFORMATION
  Report Type: Spontaneous
  Country: US (occurrence: US)
  Receive Date: 20150412
  Receipt Date: 20150525
  Transmission Date: 20150821
  Serious: No
  Sender: FDA-Public Use
  Company Number: US-JNJFOC-20140407765

PATIENT
  Sex: Female
  Weight: 59.88 kg

DRUGS (3)
  1. ORTHO EVRA [Suspect]
     Active Substance: ETHINYL ESTRADIOL\NORELGESTROMIN
     Indication: CONTRACEPTION
     Route: 062
     Dates: start: 20140701
  2. ORTHO EVRA [Suspect]
     Active Substance: ETHINYL ESTRADIOL\NORELGESTROMIN
     Indication: CONTRACEPTION
     Route: 062
     Dates: start: 2002, end: 2012
  3. LEXAPRO [Concomitant]
     Active Substance: ESCITALOPRAM OXALATE
     Indication: AFFECTIVE DISORDER
     Route: 065

REACTIONS (1)
  - Application site discolouration [Unknown]

NARRATIVE: CASE EVENT DATE: 2002
